FAERS Safety Report 6063144-7 (Version None)
Quarter: 2009Q1

REPORT INFORMATION
  Report Type: 
  Country: None (occurrence: None)
  Receive Date: 20090203
  Receipt Date: 20090127
  Transmission Date: 20090719
  Serious: Yes (Hospitalization)
  Sender: FDA-Public Use
  Company Number: FR-ROCHE-611257

PATIENT
  Sex: Male

DRUGS (14)
  1. ROCEPHIN [Suspect]
     Indication: DRUG USE FOR UNKNOWN INDICATION
     Route: 042
     Dates: start: 20080514, end: 20080602
  2. ROCEPHIN [Suspect]
     Dosage: DOSAGE REGIMEN: WITH AN INCREASE OF DOSAGE TO 2 GRAM PER DAY
     Route: 042
     Dates: start: 20080607
  3. ROCEPHIN [Suspect]
     Dosage: DOSAGE REGIMEN: WITH AN INCREASE OF DOSAGE TO 2 GRAM PER DAY
     Route: 042
     Dates: start: 20080608
  4. BACTRIM DS [Suspect]
     Indication: DRUG USE FOR UNKNOWN INDICATION
     Route: 048
     Dates: start: 20080507, end: 20080530
  5. NEORECORMON [Suspect]
     Indication: DRUG USE FOR UNKNOWN INDICATION
     Route: 058
     Dates: start: 20080521
  6. NEORECORMON [Suspect]
     Route: 058
     Dates: start: 20080528
  7. NEORECORMON [Suspect]
     Route: 058
     Dates: end: 20080603
  8. ZYLORIC [Suspect]
     Indication: DRUG USE FOR UNKNOWN INDICATION
     Dosage: DOSAGE REGIMEN: 1 DOSE
     Route: 048
     Dates: start: 20080512, end: 20080609
  9. VANCOMYCIN [Suspect]
     Indication: DRUG USE FOR UNKNOWN INDICATION
     Dosage: DOSAGE REGIMEN: WITH AN INCREASE OF DOSAGE TO 1.5 GRAM PER DAY
     Route: 042
     Dates: start: 20080519, end: 20080601
  10. GENTAMYCIN SULFATE [Concomitant]
     Dates: start: 20080507, end: 20080623
  11. TRIFLUCAN [Concomitant]
     Dates: start: 20080514, end: 20080602
  12. GRANOCYTE [Concomitant]
     Dates: start: 20080518, end: 20080601
  13. GRANOCYTE [Concomitant]
     Dates: start: 20080613
  14. MELPHALAN [Concomitant]
     Dates: start: 20080508

REACTIONS (1)
  - DERMATITIS EXFOLIATIVE [None]
